FAERS Safety Report 7139603-2 (Version None)
Quarter: 2010Q4

REPORT INFORMATION
  Report Type: 
  Country: None (occurrence: None)
  Receive Date: 20101207
  Receipt Date: 20101105
  Transmission Date: 20110411
  Serious: Yes (Hospitalization, Other)
  Sender: FDA-Public Use
  Company Number: JP-AMGEN-JPNSP2010004512

PATIENT

DRUGS (17)
  1. ENBREL [Suspect]
     Indication: RHEUMATOID ARTHRITIS
     Dosage: 25 MG, 2X/WEEK
     Route: 058
     Dates: start: 20060116, end: 20060330
  2. ENBREL [Suspect]
     Dosage: 25 MG, 2X/WEEK
     Route: 058
     Dates: start: 20060501, end: 20061130
  3. ENBREL [Suspect]
     Dosage: 25 MG 1 TIME PER WEEK
     Route: 058
     Dates: start: 20090630, end: 20090901
  4. ENBREL [Suspect]
     Dosage: 25 MG 1 TIME PER 1 WEEK
     Route: 058
     Dates: start: 20100401, end: 20100420
  5. ARAVA [Suspect]
     Indication: RHEUMATOID ARTHRITIS
     Dosage: 20 MG, 1X/DAY
     Route: 048
     Dates: start: 20040115, end: 20060120
  6. ARAVA [Suspect]
     Dosage: 10 MG, 1X/DAY
     Route: 048
     Dates: start: 20080311, end: 20090216
  7. ARAVA [Suspect]
     Dosage: 20 MG, 1X/DAY
     Route: 048
     Dates: start: 20090217, end: 20100505
  8. PREDNISOLONE [Suspect]
     Indication: RHEUMATOID ARTHRITIS
     Dosage: 3 MG, 1X/DAY
     Route: 048
     Dates: start: 20040812, end: 20100505
  9. PREDNISOLONE [Suspect]
     Dosage: VARIABLE DOSE 4MG-15 MG
     Dates: start: 19960101
  10. PREDNISOLONE [Suspect]
     Dosage: 30 MG
     Dates: start: 20100506, end: 20100520
  11. PREDNISOLONE [Suspect]
     Dosage: 20 MG
     Dates: start: 20100527
  12. LOXOPROFEN SODIUM [Concomitant]
     Indication: RHEUMATOID ARTHRITIS
     Dosage: 180 MG, 1X/DAY
     Route: 048
     Dates: start: 20040506, end: 20100505
  13. AMOBAN [Concomitant]
     Indication: INSOMNIA
     Dosage: 7.5 MG, 1X/DAY
     Route: 048
     Dates: start: 20090724, end: 20100505
  14. NIZATIDINE [Concomitant]
     Indication: GASTRITIS
     Dosage: 300 MG, 1X/DAY
     Route: 048
     Dates: start: 20090915, end: 20100505
  15. LIPITOR [Concomitant]
     Indication: HYPERCHOLESTEROLAEMIA
     Dosage: 5 MG, 1X/DAY
     Route: 048
     Dates: start: 20071218, end: 20100505
  16. ALOSENN [Concomitant]
     Indication: CONSTIPATION
     Dosage: 300 MG, 1X/DAY
     Route: 048
     Dates: start: 20060615, end: 20100505
  17. FOSAMAX [Concomitant]
     Indication: OSTEOPOROSIS
     Dosage: 35 MG 1 TIMES PER 1 WK
     Route: 048
     Dates: start: 20080311, end: 20100505

REACTIONS (9)
  - DIPLOPIA [None]
  - EYE PAIN [None]
  - EYELID FUNCTION DISORDER [None]
  - EYELID PTOSIS [None]
  - HEADACHE [None]
  - MENINGITIS TUBERCULOUS [None]
  - NAUSEA [None]
  - PYREXIA [None]
  - VITH NERVE PARALYSIS [None]
